FAERS Safety Report 10262471 (Version 2)
Quarter: 2014Q3

REPORT INFORMATION
  Report Type: Report from Study
  Country: BR (occurrence: BR)
  Receive Date: 20140626
  Receipt Date: 20140728
  Transmission Date: 20150326
  Serious: Yes (Other)
  Sender: FDA-Public Use
  Company Number: PHHY2014BR078987

PATIENT
  Sex: Male
  Weight: 112 kg

DRUGS (1)
  1. DIOVAN HCT [Suspect]
     Active Substance: HYDROCHLOROTHIAZIDE\VALSARTAN
     Indication: HYPERTENSION
     Dosage: 1 DF (160/12.5MG), QD (IN THE MORNING)
     Route: 048
     Dates: start: 2008

REACTIONS (2)
  - Blood pressure increased [Recovered/Resolved]
  - Cholelithiasis [Recovered/Resolved]
